FAERS Safety Report 4906412-1 (Version None)
Quarter: 2006Q1

REPORT INFORMATION
  Report Type: 
  Country: None (occurrence: None)
  Receive Date: 20060207
  Receipt Date: 20060125
  Transmission Date: 20060701
  Serious: Yes (Death)
  Sender: FDA-Public Use
  Company Number: JP200512003137

PATIENT
  Age: 66 Year
  Sex: Male
  Weight: 53 kg

DRUGS (5)
  1. GEMZAR [Suspect]
     Indication: BLADDER CANCER
     Dosage: SEE IMAGE
     Route: 042
     Dates: start: 20050104, end: 20050328
  2. GEMZAR [Suspect]
     Indication: BLADDER CANCER
     Dosage: SEE IMAGE
     Route: 042
     Dates: start: 20051102, end: 20051129
  3. GEMZAR [Suspect]
     Indication: BLADDER CANCER
     Dosage: SEE IMAGE
     Route: 042
     Dates: start: 20051212, end: 20051212
  4. CISPLATIN (CISPLATIN) VIAL [Concomitant]
  5. PACLITAXEL [Concomitant]

REACTIONS (10)
  - CEREBRAL VENTRICLE DILATATION [None]
  - DEPRESSED LEVEL OF CONSCIOUSNESS [None]
  - DIZZINESS [None]
  - EATING DISORDER [None]
  - HALLUCINATION [None]
  - HALLUCINATION, VISUAL [None]
  - HEARING IMPAIRED [None]
  - MENINGISM [None]
  - NEOPLASM MALIGNANT [None]
  - PUPILLARY REFLEX IMPAIRED [None]
